FAERS Safety Report 4319898-0 (Version None)
Quarter: 2004Q1

REPORT INFORMATION
  Report Type: 
  Country: None (occurrence: None)
  Receive Date: 20040316
  Receipt Date: 20040302
  Transmission Date: 20041129
  Serious: Yes (Death)
  Sender: FDA-Public Use
  Company Number: NSADSS2002043900

PATIENT
  Age: 77 Year
  Sex: Male
  Weight: 68.0396 kg

DRUGS (10)
  1. REMICADE [Suspect]
     Indication: MYELOID LEUKAEMIA
     Dosage: 10 MG/KG, 1 IN 1 AS NECESSARY, INTRAVENOUS DRIP
     Route: 041
     Dates: start: 20020701
  2. THALIDOMIDE (THALIDOMIDE) UNSPECIFIED [Suspect]
     Indication: MYELOID LEUKAEMIA
  3. ATENOLOL [Concomitant]
  4. LIPITOR [Concomitant]
  5. NITROGLYCERIN SL (GLYCERYL TRINITRATE) [Concomitant]
  6. ASPIRIN [Concomitant]
  7. KLONOPIN [Concomitant]
  8. VIOXX [Concomitant]
  9. NEUPOGEN [Concomitant]
  10. LEUKIONE (ALL OTHER THERAPEUTIC PRODUCTS) [Concomitant]

REACTIONS (12)
  - CEREBROVASCULAR ACCIDENT [None]
  - DRUG INTOLERANCE [None]
  - FEBRILE NEUTROPENIA [None]
  - HYPOALBUMINAEMIA [None]
  - HYPOVOLAEMIA [None]
  - LEUKAEMIA RECURRENT [None]
  - OEDEMA PERIPHERAL [None]
  - PANCYTOPENIA [None]
  - PULMONARY OEDEMA [None]
  - REFUSAL OF TREATMENT BY PATIENT [None]
  - RENAL FAILURE ACUTE [None]
  - THERAPY NON-RESPONDER [None]
